FAERS Safety Report 6462039-4 (Version None)
Quarter: 2009Q4

REPORT INFORMATION
  Report Type: 
  Country: None (occurrence: None)
  Receive Date: 20091130
  Receipt Date: 20091112
  Transmission Date: 20100525
  Serious: Yes (Other)
  Sender: FDA-Public Use
  Company Number: PHHY2009IE45583

PATIENT
  Sex: Male
  Weight: 78 kg

DRUGS (6)
  1. CLOZARIL [Suspect]
     Indication: SCHIZOPHRENIA
     Dosage: 100MG MANE AND 400MG NOCTE
     Route: 048
     Dates: start: 20090225
  2. CLOZARIL [Suspect]
     Dosage: 100MG MANE AND 400MG NOCTE
  3. VALPROATE SODIUM [Concomitant]
     Indication: AFFECTIVE DISORDER
     Dosage: 1000 MG, UNK
     Route: 048
  4. VALPROATE SODIUM [Concomitant]
     Dosage: 600 MG, UNK
     Dates: start: 20091020
  5. BIPERIDEN HYDROCHLORIDE TAB [Concomitant]
  6. ZOPICLONE [Concomitant]
     Indication: INSOMNIA
     Dosage: 15 MG/DAY
     Route: 048
     Dates: end: 20091020

REACTIONS (3)
  - DRUG LEVEL INCREASED [None]
  - OVERDOSE [None]
  - SOMNOLENCE [None]
